FAERS Safety Report 17591423 (Version 2)
Quarter: 2020Q4

REPORT INFORMATION
  Report Type: Spontaneous
  Country: US (occurrence: US)
  Receive Date: 20200327
  Receipt Date: 20201123
  Transmission Date: 20210113
  Serious: No
  Sender: FDA-Public Use
  Company Number: US-VERTEX PHARMACEUTICALS-2020-006444

PATIENT
  Sex: Female
  Weight: 47 kg

DRUGS (3)
  1. OMEGA 3 [FISH OIL] [Concomitant]
     Active Substance: FISH OIL
  2. CREON [Concomitant]
     Active Substance: PANCRELIPASE AMYLASE\PANCRELIPASE LIPASE\PANCRELIPASE PROTEASE
  3. TRIKAFTA [Suspect]
     Active Substance: ELEXACAFTOR\IVACAFTOR\TEZACAFTOR
     Indication: CYSTIC FIBROSIS
     Dosage: 100G ELEXACAFTOR/50MGTEZACAFTOR/75MGIVACAFTOR AND150MG IVACAFTOR)BID
     Route: 048
     Dates: start: 20200226

REACTIONS (1)
  - Sputum discoloured [Not Recovered/Not Resolved]
